FAERS Safety Report 5867953-6 (Version None)
Quarter: 2008Q3

REPORT INFORMATION
  Report Type: 
  Country: None (occurrence: None)
  Receive Date: 20080902
  Receipt Date: 20080825
  Transmission Date: 20090109
  Serious: No
  Sender: FDA-Public Use
  Company Number: US-BOEHRINGER INGELHEIM GMBH, GERMANY-2008-BP-13588BP

PATIENT
  Age: 50 Year
  Sex: Male

DRUGS (2)
  1. SPIRIVA [Suspect]
  2. MANY OTHER MEDICATIONS [Concomitant]

REACTIONS (1)
  - URTICARIA [None]
